FAERS Safety Report 5541964-2 (Version None)
Quarter: 2007Q4

REPORT INFORMATION
  Report Type: 
  Country: None (occurrence: None)
  Receive Date: 20071205
  Receipt Date: 20071120
  Transmission Date: 20080405
  Serious: Yes (Hospitalization)
  Sender: FDA-Public Use
  Company Number: SPV1-2007-05054

PATIENT
  Age: 55 Year
  Sex: Male

DRUGS (3)
  1. PENTASA [Suspect]
     Dosage: ORAL
     Route: 048
  2. AZATHIOPRINE [Concomitant]
  3. PREDNISONE [Concomitant]

REACTIONS (1)
  - INTERSTITIAL LUNG DISEASE [None]
